FAERS Safety Report 18923521 (Version 1)
Quarter: 2021Q1

REPORT INFORMATION
  Report Type: Spontaneous
  Country: CA (occurrence: CA)
  Receive Date: 20210222
  Receipt Date: 20210222
  Transmission Date: 20210420
  Serious: Yes (Death)
  Sender: FDA-Public Use
  Company Number: CA-TAKEDA-CA201916132

PATIENT
  Age: 73 Year
  Sex: Male

DRUGS (10)
  1. SOLU?MEDROL [Concomitant]
     Active Substance: METHYLPREDNISOLONE SODIUM SUCCINATE
     Dosage: 40 MILLIGRAM
     Route: 042
  2. ROCUBROM [Concomitant]
     Dosage: 10 MILLIGRAM
     Route: 042
  3. VERSED [Concomitant]
     Active Substance: MIDAZOLAM HYDROCHLORIDE
     Indication: ENDOTRACHEAL INTUBATION
     Dosage: 5 MILLIGRAM
     Route: 042
  4. KETAMINE [Concomitant]
     Active Substance: KETAMINE
     Dosage: 100 MILLIGRAM
     Route: 042
  5. ZOFRAN [Concomitant]
     Active Substance: ONDANSETRON HYDROCHLORIDE
     Route: 065
  6. GAMMAGARD LIQUID [Suspect]
     Active Substance: HUMAN IMMUNOGLOBULIN G
     Indication: PRODUCT USED FOR UNKNOWN INDICATION
     Dosage: 30 GRAM
     Route: 065
     Dates: start: 20190301
  7. EPI 506 [Concomitant]
     Dosage: 0.5 MILLIGRAM
     Route: 042
  8. VASOPRESSIN. [Concomitant]
     Active Substance: VASOPRESSIN
     Route: 065
  9. DOBUTAMINE [Concomitant]
     Active Substance: DOBUTAMINE HYDROCHLORIDE
     Dosage: 250 MILLIGRAM
     Route: 065
  10. LEVO [CHLORAMPHENICOL] [Concomitant]
     Dosage: 5 UNK
     Route: 065

REACTIONS (5)
  - Dyspnoea [Fatal]
  - Blood pressure decreased [Unknown]
  - Neck pain [Unknown]
  - Vomiting [Unknown]
  - Drug intolerance [Recovered/Resolved with Sequelae]

NARRATIVE: CASE EVENT DATE: 20190301
